FAERS Safety Report 21258638 (Version 2)
Quarter: 2023Q1

REPORT INFORMATION
  Report Type: Report from Study
  Country: JP (occurrence: JP)
  Receive Date: 20220826
  Receipt Date: 20230221
  Transmission Date: 20230417
  Serious: Yes (Death, Other)
  Sender: FDA-Public Use
  Company Number: JP-ASTELLAS-2022JP012444

PATIENT
  Age: 8 Decade
  Sex: Male

DRUGS (1)
  1. ENFORTUMAB VEDOTIN [Suspect]
     Active Substance: ENFORTUMAB VEDOTIN
     Indication: Bladder cancer
     Dosage: UNK UNK, UNKNOWN FREQ.
     Route: 041
     Dates: start: 20220106

REACTIONS (3)
  - Death [Fatal]
  - Rash [Unknown]
  - Drug eruption [Unknown]

NARRATIVE: CASE EVENT DATE: 20220120
